FAERS Safety Report 11837833 (Version 3)
Quarter: 2015Q4

REPORT INFORMATION
  Report Type: Report from Study
  Country: BR (occurrence: BR)
  Receive Date: 20151215
  Receipt Date: 20151230
  Transmission Date: 20160305
  Serious: Yes (Other)
  Sender: FDA-Public Use
  Company Number: BR-ABBVIE-15K-020-1515962-00

PATIENT
  Sex: Female
  Weight: 50 kg

DRUGS (6)
  1. FOLIC ACID. [Concomitant]
     Active Substance: FOLIC ACID
     Indication: PRODUCT USED FOR UNKNOWN INDICATION
     Route: 048
  2. PREDNISONE. [Concomitant]
     Active Substance: PREDNISONE
     Dates: start: 20151129
  3. METHOTREXATE [Suspect]
     Active Substance: METHOTREXATE
     Indication: ARTHRITIS
     Route: 048
     Dates: start: 2012
  4. PREDNISONE. [Concomitant]
     Active Substance: PREDNISONE
     Indication: PAIN
     Dosage: ABOUT 10 MG OR 15 MG AS NEEDED
     Dates: end: 20151129
  5. HUMIRA [Suspect]
     Active Substance: ADALIMUMAB
     Indication: RHEUMATOID ARTHRITIS
     Route: 058
     Dates: start: 20110101
  6. HUMIRA [Suspect]
     Active Substance: ADALIMUMAB
     Route: 058

REACTIONS (32)
  - Joint range of motion decreased [Unknown]
  - Rheumatoid factor increased [Unknown]
  - Osteoarthritis [Unknown]
  - Arthropathy [Not Recovered/Not Resolved]
  - Arthralgia [Not Recovered/Not Resolved]
  - Musculoskeletal stiffness [Not Recovered/Not Resolved]
  - Musculoskeletal stiffness [Not Recovered/Not Resolved]
  - Pain in extremity [Not Recovered/Not Resolved]
  - Skeletal injury [Unknown]
  - Depression [Unknown]
  - Musculoskeletal pain [Unknown]
  - Pain [Not Recovered/Not Resolved]
  - Peripheral swelling [Unknown]
  - Arthropathy [Unknown]
  - Osteopenia [Unknown]
  - Pain in extremity [Unknown]
  - Asthenia [Unknown]
  - Bone deformity [Unknown]
  - Skin disorder [Unknown]
  - Malaise [Unknown]
  - Joint dislocation [Unknown]
  - Abdominal pain upper [Recovering/Resolving]
  - Tendon rupture [Unknown]
  - Pain [Unknown]
  - Blood pressure abnormal [Recovered/Resolved]
  - Joint stiffness [Unknown]
  - Foot fracture [Unknown]
  - Activities of daily living impaired [Unknown]
  - Synovial disorder [Unknown]
  - Joint range of motion decreased [Unknown]
  - Arthropathy [Not Recovered/Not Resolved]
  - Arthralgia [Unknown]

NARRATIVE: CASE EVENT DATE: 2012
